FAERS Safety Report 11884060 (Version 1)
Quarter: 2015Q4

REPORT INFORMATION
  Report Type: Spontaneous
  Country: US (occurrence: None)
  Receive Date: 20151231
  Receipt Date: 20151231
  Transmission Date: 20160305
  Serious: No
  Sender: FDA-Public Use
  Company Number: None

PATIENT
  Age: 72 Year
  Sex: Male

DRUGS (1)
  1. INLYTA [Suspect]
     Active Substance: AXITINIB
     Indication: RENAL CANCER
     Dosage: BY MOUTH
     Dates: start: 20151109, end: 201512

REACTIONS (2)
  - Hallucination [None]
  - Insomnia [None]

NARRATIVE: CASE EVENT DATE: 20151218
